FAERS Safety Report 10631929 (Version 1)
Quarter: 2014Q4

REPORT INFORMATION
  Report Type: Spontaneous
  Country: US (occurrence: US)
  Receive Date: 20141205
  Receipt Date: 20141205
  Transmission Date: 20150529
  Serious: No
  Sender: FDA-Public Use
  Company Number: US-BRISTOL-MYERS SQUIBB COMPANY-21540851

PATIENT
  Age: 78 Year
  Sex: Female
  Weight: 81.63 kg

DRUGS (5)
  1. FLECAINIDE [Concomitant]
     Active Substance: FLECAINIDE
  2. ALEVE [Concomitant]
     Active Substance: NAPROXEN SODIUM
  3. HCTZ [Concomitant]
     Active Substance: HYDROCHLOROTHIAZIDE
  4. DILANTIN [Concomitant]
     Active Substance: PHENYTOIN
  5. ELIQUIS [Suspect]
     Active Substance: APIXABAN
     Indication: CEREBROVASCULAR ACCIDENT PROPHYLAXIS
     Dates: start: 20140918

REACTIONS (2)
  - Dizziness [Unknown]
  - Motion sickness [Unknown]

NARRATIVE: CASE EVENT DATE: 2014
